FAERS Safety Report 19834270 (Version 1)
Quarter: 2021Q3

REPORT INFORMATION
  Report Type: Spontaneous
  Country: DE (occurrence: DE)
  Receive Date: 20210915
  Receipt Date: 20210915
  Transmission Date: 20211014
  Serious: Yes (Hospitalization, Other)
  Sender: FDA-Public Use
  Company Number: DE-TEVA-2021-DE-1954348

PATIENT
  Age: 55 Year
  Sex: Female

DRUGS (1)
  1. COPAXONE [Suspect]
     Active Substance: GLATIRAMER ACETATE
     Indication: MULTIPLE SCLEROSIS
     Dates: start: 20180201

REACTIONS (4)
  - Foot fracture [Recovering/Resolving]
  - Fall [Recovered/Resolved]
  - Gait inability [Not Recovered/Not Resolved]
  - Comminuted fracture [Recovering/Resolving]

NARRATIVE: CASE EVENT DATE: 20190104
